FAERS Safety Report 16822518 (Version 1)
Quarter: 2019Q3

REPORT INFORMATION
  Report Type: Spontaneous
  Country: ES (occurrence: ES)
  Receive Date: 20190918
  Receipt Date: 20190918
  Transmission Date: 20191005
  Serious: Yes (Other)
  Sender: FDA-Public Use
  Company Number: ES-PFIZER INC-2019394864

PATIENT
  Age: 41 Year
  Sex: Male

DRUGS (21)
  1. TRYPTIZOL [Suspect]
     Active Substance: AMITRIPTYLINE HYDROCHLORIDE
     Dosage: 10 MG, 1X/DAY (QD)
     Route: 065
     Dates: start: 201211
  2. AMITRIPTILINA [AMITRIPTYLINE HYDROCHLORIDE] [Suspect]
     Active Substance: AMITRIPTYLINE HYDROCHLORIDE
     Indication: MIGRAINE
     Dosage: 10 MG, 1X/DAY (QD)
     Dates: start: 201110
  3. IBUPROFEN. [Suspect]
     Active Substance: IBUPROFEN
     Indication: MIGRAINE
     Dosage: UNK
  4. TRYPTIZOL [Suspect]
     Active Substance: AMITRIPTYLINE HYDROCHLORIDE
     Indication: MIGRAINE
     Dosage: 1 DF, 1X/DAY (QD)
     Route: 065
  5. RELPAX [Suspect]
     Active Substance: ELETRIPTAN HYDROBROMIDE
     Indication: MIGRAINE
     Dosage: UNK
  6. LAMOTRIGINE. [Suspect]
     Active Substance: LAMOTRIGINE
     Indication: MIGRAINE
     Dosage: 50 MG, 1X/DAY (QD)
     Dates: start: 201110
  7. TOPIRAMATO [Suspect]
     Active Substance: TOPIRAMATE
     Dosage: 50 MG, UNK
     Route: 065
  8. BOTOX [Suspect]
     Active Substance: ONABOTULINUMTOXINA
     Dosage: 150 IU, UNK
  9. DEPAKINE [VALPROATE SODIUM] [Suspect]
     Active Substance: VALPROATE SODIUM
     Indication: MIGRAINE
     Dosage: 500 MG, UNK
     Dates: start: 201211
  10. NOLOTIL [METAMIZOLE MAGNESIUM] [Suspect]
     Active Substance: METAMIZOLE MAGNESIUM
     Indication: MIGRAINE
     Dosage: UNK
  11. HEMICRANEAL [CAFFEINE;ERGOTAMINE TARTRATE;PARACETAMOL] [Suspect]
     Active Substance: ACETAMINOPHEN\CAFFEINE\ERGOTAMINE TARTRATE
     Indication: MIGRAINE
     Dosage: UNK
  12. MAXALT [Suspect]
     Active Substance: RIZATRIPTAN BENZOATE
     Indication: MIGRAINE
     Dosage: UNK
  13. XEOMIN [Suspect]
     Active Substance: INCOBOTULINUMTOXINA
     Indication: MIGRAINE
     Dosage: 150 IU, UNK
     Dates: start: 20130307
  14. PAROXETINE. [Suspect]
     Active Substance: PAROXETINE
     Indication: MIGRAINE
     Dosage: UNK
  15. LEXATIN [BROMAZEPAM] [Suspect]
     Active Substance: BROMAZEPAM
     Indication: MIGRAINE
     Dosage: 3 MG, UNK
  16. ZOMIG [Suspect]
     Active Substance: ZOLMITRIPTAN
     Indication: MIGRAINE
     Dosage: UNK
  17. TOPIRAMATO [Suspect]
     Active Substance: TOPIRAMATE
     Indication: MIGRAINE
     Dosage: 25 MG, UNK
     Route: 065
     Dates: end: 200906
  18. BOTOX [Suspect]
     Active Substance: ONABOTULINUMTOXINA
     Indication: MIGRAINE
     Dosage: 100 IU, UNK
     Dates: start: 201110
  19. VOLTAREN [DICLOFENAC] [Suspect]
     Active Substance: DICLOFENAC SODIUM
     Indication: MIGRAINE
     Dosage: UNK
  20. SIBELIUM [FLUNARIZINE DIHYDROCHLORIDE] [Suspect]
     Active Substance: FLUNARIZINE HYDROCHLORIDE
     Indication: MIGRAINE
     Dosage: 5 MG, UNK
  21. PREDNISONE. [Suspect]
     Active Substance: PREDNISONE
     Indication: MIGRAINE
     Dosage: 60 MG, 1X/DAY (QD)

REACTIONS (6)
  - Drug abuse [Unknown]
  - Therapy partial responder [Unknown]
  - Off label use [Unknown]
  - Product use in unapproved indication [Unknown]
  - Insomnia [Unknown]
  - Paraesthesia [Unknown]

NARRATIVE: CASE EVENT DATE: 200902
